FAERS Safety Report 15035859 (Version 1)
Quarter: 2018Q2

REPORT INFORMATION
  Report Type: Spontaneous
  Country: US (occurrence: US)
  Receive Date: 20180530
  Receipt Date: 20180530
  Transmission Date: 20180711
  Serious: No
  Sender: FDA-Public Use
  Company Number: None

PATIENT
  Age: 36 Year
  Sex: Female

DRUGS (1)
  1. AFINITOR [Suspect]
     Active Substance: EVEROLIMUS
     Dates: start: 20180406, end: 20180513

REACTIONS (4)
  - Drug dose omission [None]
  - Oral pain [None]
  - Dry skin [None]
  - Headache [None]

NARRATIVE: CASE EVENT DATE: 20180529
